FAERS Safety Report 8908170 (Version 1)
Quarter: 2012Q4

REPORT INFORMATION
  Report Type: 
  Country: AR (occurrence: AR)
  Receive Date: 20121113
  Receipt Date: 20121113
  Transmission Date: 20130627
  Serious: Yes (Other)
  Sender: FDA-Public Use
  Company Number: PHHY2012AR104549

PATIENT
  Age: 59 Year
  Sex: Female

DRUGS (2)
  1. EXFORGE [Suspect]
     Indication: BLOOD PRESSURE
     Dosage: 1 DF, 1 tablet (valsartan 320/ amlodipin 10) per day
     Route: 048
  2. GALVUS MET [Suspect]
     Indication: BLOOD GLUCOSE INCREASED
     Dosage: 2 DF, 2 tablets (metformine 850/ vildagliptine 50) per day
     Route: 048

REACTIONS (1)
  - Hypertension [Not Recovered/Not Resolved]
